FAERS Safety Report 23098322 (Version 1)
Quarter: 2023Q4

REPORT INFORMATION
  Report Type: Spontaneous
  Country: US (occurrence: US)
  Receive Date: 20231023
  Receipt Date: 20231023
  Transmission Date: 20240109
  Serious: No
  Sender: FDA-Public Use
  Company Number: US-BEH-2023164386

PATIENT
  Sex: Female

DRUGS (5)
  1. PRIVIGEN [Suspect]
     Active Substance: HUMAN IMMUNOGLOBULIN G
     Indication: Dermatomyositis
     Dosage: 130 GRAM, QMT
     Route: 042
     Dates: start: 202310
  2. HEPARIN [Concomitant]
     Active Substance: HEPARIN SODIUM
     Dosage: 5 MILLILITER
  3. ACETAMINOPHEN [Concomitant]
     Active Substance: ACETAMINOPHEN
  4. EPINEPHRINE [Concomitant]
     Active Substance: EPINEPHRINE
  5. ALLERGY [DIPHENHYDRAMINE HYDROCHLORIDE] [Concomitant]

REACTIONS (4)
  - Blood pressure diastolic increased [Unknown]
  - Blood pressure increased [Unknown]
  - No adverse event [Unknown]
  - Off label use [Unknown]
